FAERS Safety Report 19666675 (Version 2)
Quarter: 2021Q3

REPORT INFORMATION
  Report Type: Spontaneous
  Country: FR (occurrence: FR)
  Receive Date: 20210806
  Receipt Date: 20210813
  Transmission Date: 20211014
  Serious: Yes (Hospitalization)
  Sender: FDA-Public Use
  Company Number: FR-CELLTRION INC.-2021FR010290

PATIENT

DRUGS (10)
  1. ECULIZUMAB [Suspect]
     Active Substance: ECULIZUMAB
     Indication: DELAYED HAEMOLYTIC TRANSFUSION REACTION
     Dosage: 900 MG, ON DAYS 1 AND 7
     Route: 042
  2. FERRIC HYDROXIDE [Suspect]
     Active Substance: FERRIC HYDROXIDE
     Indication: DELAYED HAEMOLYTIC TRANSFUSION REACTION
     Dosage: 100 MG
     Route: 065
  3. EPOETIN ALFA [Suspect]
     Active Substance: ERYTHROPOIETIN
     Indication: DELAYED HAEMOLYTIC TRANSFUSION REACTION
     Dosage: 50 IU/KG, PER 0.33 WEEK
     Route: 065
  4. METHYLPREDNISOLONE. [Suspect]
     Active Substance: METHYLPREDNISOLONE
     Indication: DELAYED HAEMOLYTIC TRANSFUSION REACTION
     Dosage: 250 MG/DAY
     Route: 065
  5. IMMUNOGLOBULINS NOS [Suspect]
     Active Substance: IMMUNE GLOBULIN NOS
     Indication: DELAYED HAEMOLYTIC TRANSFUSION REACTION
     Dosage: 2 G/KG TOTAL DOSE ON DAYS 1 TO 5
     Route: 042
  6. RITUXIMAB (UNKNOWN) [Suspect]
     Active Substance: RITUXIMAB
     Indication: DELAYED HAEMOLYTIC TRANSFUSION REACTION
     Dosage: 375 MG/M2, ON DAYS 1, 4, 8, AND 12.
     Route: 041
  7. DARBEPOETIN ALFA [Suspect]
     Active Substance: DARBEPOETIN ALFA
     Indication: DELAYED HAEMOLYTIC TRANSFUSION REACTION
     Dosage: 300 UG, PER 1 WEEK
     Route: 065
  8. METHOXY POLYETHYLENE GLYCOL?EPOETIN BETA. [Suspect]
     Active Substance: METHOXY POLYETHYLENE GLYCOL-EPOETIN BETA
     Indication: DELAYED HAEMOLYTIC TRANSFUSION REACTION
     Dosage: 360 MG FOR 4 DAYS
     Route: 065
  9. IMMUNOGLOBULINS NOS [Suspect]
     Active Substance: IMMUNE GLOBULIN NOS
     Dosage: 2 G/KG/DAY FOR 5 DAYS ON 12 JUNE
     Route: 042
  10. FOLIC ACID. [Suspect]
     Active Substance: FOLIC ACID
     Indication: DELAYED HAEMOLYTIC TRANSFUSION REACTION
     Dosage: 30 MG/DAY
     Route: 065

REACTIONS (5)
  - Drug ineffective for unapproved indication [Unknown]
  - Off label use [Unknown]
  - Premature delivery [Unknown]
  - Maternal exposure during pregnancy [Unknown]
  - Pyelonephritis [Recovered/Resolved]
